FAERS Safety Report 12694303 (Version 2)
Quarter: 2016Q4

REPORT INFORMATION
  Report Type: Spontaneous
  Country: US (occurrence: US)
  Receive Date: 20160829
  Receipt Date: 20161003
  Transmission Date: 20170207
  Serious: No
  Sender: FDA-Public Use
  Company Number: US-PFIZER INC-2016403898

PATIENT
  Age: 65 Year
  Sex: Male
  Weight: 73 kg

DRUGS (2)
  1. TRIFLURIDINE. [Suspect]
     Active Substance: TRIFLURIDINE
     Dosage: 1 PERCENT ONE DROP FIVE TIMES A DAY
     Route: 047
     Dates: start: 20160824
  2. PREDNISONE. [Concomitant]
     Active Substance: PREDNISONE
     Dosage: 1 PERCENT ONE DROP 4X/DAY
     Route: 047
     Dates: start: 201608

REACTIONS (3)
  - Drug ineffective [Unknown]
  - Poor quality drug administered [Unknown]
  - Incorrect product storage [Unknown]

NARRATIVE: CASE EVENT DATE: 20160824
